FAERS Safety Report 25234412 (Version 2)
Quarter: 2025Q3

REPORT INFORMATION
  Report Type: Other
  Country: CA (occurrence: CA)
  Receive Date: 20250424
  Receipt Date: 20250704
  Transmission Date: 20251020
  Serious: Yes (Hospitalization, Other)
  Sender: Atnahs Healthcare
  Company Number: CA-ATNAHS-ATNAHS20250201670

PATIENT
  Age: 75 Year
  Sex: Female
  Weight: 70 kg

DRUGS (91)
  1. NAPROXEN [Suspect]
     Active Substance: NAPROXEN
     Indication: Arthralgia
  2. ACETAMINOPHEN [Suspect]
     Active Substance: ACETAMINOPHEN
     Indication: Product used for unknown indication
  3. ACETAMINOPHEN [Suspect]
     Active Substance: ACETAMINOPHEN
  4. ACETAMINOPHEN [Suspect]
     Active Substance: ACETAMINOPHEN
  5. ADVIL [Suspect]
     Active Substance: IBUPROFEN
     Indication: Arthralgia
  6. ADVIL [Suspect]
     Active Substance: IBUPROFEN
     Indication: Product used for unknown indication
  7. AMOXICILLIN [Suspect]
     Active Substance: AMOXICILLIN
     Indication: Sinusitis
  8. ATORVASTATIN [Suspect]
     Active Substance: ATORVASTATIN
     Indication: Dyslipidaemia
  9. AZOPT [Suspect]
     Active Substance: BRINZOLAMIDE
     Indication: Glaucoma
     Route: 047
  10. AZOPT [Suspect]
     Active Substance: BRINZOLAMIDE
  11. DIETARY SUPPLEMENT\MINERALS\VITAMINS [Suspect]
     Active Substance: DIETARY SUPPLEMENT\MINERALS\VITAMINS
     Indication: Product used for unknown indication
  12. CLONAZEPAM [Suspect]
     Active Substance: CLONAZEPAM
     Indication: Product used for unknown indication
  13. CLONAZEPAM [Suspect]
     Active Substance: CLONAZEPAM
  14. DEXPANTHENOL [Suspect]
     Active Substance: DEXPANTHENOL
     Indication: Product used for unknown indication
  15. DICLOFENAC [Suspect]
     Active Substance: DICLOFENAC
     Indication: Arthralgia
     Route: 047
  16. DICLOFENAC [Suspect]
     Active Substance: DICLOFENAC
     Indication: Product used for unknown indication
  17. ERGOCALCIFEROL [Suspect]
     Active Substance: ERGOCALCIFEROL
     Indication: Product used for unknown indication
  18. ESTRADIOL [Suspect]
     Active Substance: ESTRADIOL
     Indication: Product used for unknown indication
  19. ESTRADIOL [Suspect]
     Active Substance: ESTRADIOL
     Indication: Menopausal symptoms
  20. FOLIC ACID [Suspect]
     Active Substance: FOLIC ACID
     Indication: Product used for unknown indication
  21. GABAPENTIN [Suspect]
     Active Substance: GABAPENTIN
     Indication: Arthralgia
  22. GABAPENTIN [Suspect]
     Active Substance: GABAPENTIN
     Indication: Product used for unknown indication
  23. IPRATROPIUM [Concomitant]
     Active Substance: IPRATROPIUM
     Indication: Product used for unknown indication
  24. IPRATROPIUM [Concomitant]
     Active Substance: IPRATROPIUM
     Indication: Rhinitis
  25. LATANOPROST [Suspect]
     Active Substance: LATANOPROST
     Indication: Glaucoma
     Route: 047
  26. NICOTINAMIDE [Suspect]
     Active Substance: NIACINAMIDE
     Indication: Product used for unknown indication
  27. ESTRADIOL [Suspect]
     Active Substance: ESTRADIOL
     Indication: Product used for unknown indication
  28. PREGABALIN [Suspect]
     Active Substance: PREGABALIN
     Indication: Arthralgia
  29. PYRIDOXINE HYDROCHLORIDE [Suspect]
     Active Substance: PYRIDOXINE HYDROCHLORIDE
     Indication: Product used for unknown indication
  30. PYRIDOXINE HYDROCHLORIDE [Suspect]
     Active Substance: PYRIDOXINE HYDROCHLORIDE
  31. PYRIDOXINE HYDROCHLORIDE [Suspect]
     Active Substance: PYRIDOXINE HYDROCHLORIDE
  32. RIBOFLAVIN [Suspect]
     Active Substance: RIBOFLAVIN
     Indication: Product used for unknown indication
  33. TELMISARTAN [Suspect]
     Active Substance: TELMISARTAN
     Indication: Product used for unknown indication
     Route: 047
  34. TELMISARTAN [Suspect]
     Active Substance: TELMISARTAN
     Indication: Glaucoma
  35. TELMISARTAN [Suspect]
     Active Substance: TELMISARTAN
     Indication: Hypertension
  36. TELMISARTAN [Suspect]
     Active Substance: TELMISARTAN
  37. TELMISARTAN [Suspect]
     Active Substance: TELMISARTAN
  38. THIAMINE HYDROCHLORIDE [Suspect]
     Active Substance: THIAMINE HYDROCHLORIDE
     Indication: Product used for unknown indication
  39. TUMS [Suspect]
     Active Substance: CALCIUM CARBONATE
     Indication: Product used for unknown indication
  40. TUMS [Suspect]
     Active Substance: CALCIUM CARBONATE
  41. RETINOL [Suspect]
     Active Substance: RETINOL
     Indication: Product used for unknown indication
  42. VITAMIN B6 [Suspect]
     Active Substance: PYRIDOXINE HYDROCHLORIDE
     Indication: Product used for unknown indication
  43. VITAMIN C [Suspect]
     Active Substance: ASCORBIC ACID
     Indication: Product used for unknown indication
  44. ZOPICLONE [Suspect]
     Active Substance: ZOPICLONE
     Indication: Product used for unknown indication
  45. ZOPICLONE [Suspect]
     Active Substance: ZOPICLONE
     Indication: Sinusitis
  46. ZOPICLONE [Suspect]
     Active Substance: ZOPICLONE
     Indication: Insomnia
  47. ZOPICLONE [Suspect]
     Active Substance: ZOPICLONE
     Indication: Dyslipidaemia
  48. ZOPICLONE [Suspect]
     Active Substance: ZOPICLONE
     Indication: Arthralgia
  49. ZOPICLONE [Suspect]
     Active Substance: ZOPICLONE
  50. ZOPICLONE [Suspect]
     Active Substance: ZOPICLONE
  51. ZOPICLONE [Suspect]
     Active Substance: ZOPICLONE
  52. ZOPICLONE [Suspect]
     Active Substance: ZOPICLONE
  53. ZOPICLONE [Suspect]
     Active Substance: ZOPICLONE
  54. ZOPICLONE [Suspect]
     Active Substance: ZOPICLONE
  55. ZOPICLONE [Suspect]
     Active Substance: ZOPICLONE
  56. ZOPICLONE [Suspect]
     Active Substance: ZOPICLONE
  57. ACETAMINOPHEN [Concomitant]
     Active Substance: ACETAMINOPHEN
     Indication: Product used for unknown indication
  58. ACETAMINOPHEN/PSEUD OEPHEDRINE HYDROCHLORIDE [Concomitant]
     Indication: Product used for unknown indication
  59. ATORVASTATIN CALCIUM [Suspect]
     Active Substance: ATORVASTATIN CALCIUM
     Indication: Dyslipidaemia
  60. ATORVASTATIN CALCIUM [Suspect]
     Active Substance: ATORVASTATIN CALCIUM
  61. BRINZOLAMIDE\TIMOLOL MALEATE [Suspect]
     Active Substance: BRINZOLAMIDE\TIMOLOL MALEATE
     Indication: Glaucoma
     Route: 047
  62. BRINZOLAMIDE\TIMOLOL MALEATE [Suspect]
     Active Substance: BRINZOLAMIDE\TIMOLOL MALEATE
     Indication: Product used for unknown indication
     Route: 047
  63. BRINZOLAMIDE\TIMOLOL MALEATE [Suspect]
     Active Substance: BRINZOLAMIDE\TIMOLOL MALEATE
     Route: 047
  64. BRINZOLAMIDE\TIMOLOL MALEATE [Suspect]
     Active Substance: BRINZOLAMIDE\TIMOLOL MALEATE
     Route: 047
  65. BRINZOLAMIDE\TIMOLOL MALEATE [Suspect]
     Active Substance: BRINZOLAMIDE\TIMOLOL MALEATE
     Route: 047
  66. BRINZOLAMIDE\TIMOLOL MALEATE [Suspect]
     Active Substance: BRINZOLAMIDE\TIMOLOL MALEATE
     Route: 047
  67. BRINZOLAMIDE\TIMOLOL MALEATE [Suspect]
     Active Substance: BRINZOLAMIDE\TIMOLOL MALEATE
  68. BRINZOLAMIDE\TIMOLOL MALEATE [Suspect]
     Active Substance: BRINZOLAMIDE\TIMOLOL MALEATE
  69. BRINZOLAMIDE\TIMOLOL MALEATE [Suspect]
     Active Substance: BRINZOLAMIDE\TIMOLOL MALEATE
  70. BRINZOLAMIDE\TIMOLOL MALEATE [Suspect]
     Active Substance: BRINZOLAMIDE\TIMOLOL MALEATE
  71. BRINZOLAMIDE\TIMOLOL MALEATE [Suspect]
     Active Substance: BRINZOLAMIDE\TIMOLOL MALEATE
  72. BRINZOLAMIDE\TIMOLOL MALEATE [Suspect]
     Active Substance: BRINZOLAMIDE\TIMOLOL MALEATE
  73. BRINZOLAMIDE\TIMOLOL MALEATE [Suspect]
     Active Substance: BRINZOLAMIDE\TIMOLOL MALEATE
  74. BRINZOLAMIDE\TIMOLOL MALEATE [Suspect]
     Active Substance: BRINZOLAMIDE\TIMOLOL MALEATE
  75. BRINZOLAMIDE\TIMOLOL MALEATE [Suspect]
     Active Substance: BRINZOLAMIDE\TIMOLOL MALEATE
  76. BRINZOLAMIDE\TIMOLOL MALEATE [Suspect]
     Active Substance: BRINZOLAMIDE\TIMOLOL MALEATE
  77. CHOLECALCIFEROL [Concomitant]
     Active Substance: CHOLECALCIFEROL
     Indication: Product used for unknown indication
  78. VITAMIN D3 [Suspect]
     Active Substance: CHOLECALCIFEROL
     Indication: Product used for unknown indication
  79. VITAMIN D3 [Suspect]
     Active Substance: CHOLECALCIFEROL
  80. VITAMIN D3 [Suspect]
     Active Substance: CHOLECALCIFEROL
  81. VITAMIN D3 [Suspect]
     Active Substance: CHOLECALCIFEROL
  82. VITAMIN D3 [Suspect]
     Active Substance: CHOLECALCIFEROL
  83. VITAMIN D3 [Suspect]
     Active Substance: CHOLECALCIFEROL
  84. VITAMIN D3 [Suspect]
     Active Substance: CHOLECALCIFEROL
  85. VITAMIN D3 [Suspect]
     Active Substance: CHOLECALCIFEROL
  86. ATORVASTATIN CALCIUM [Concomitant]
     Active Substance: ATORVASTATIN CALCIUM
     Indication: Product used for unknown indication
  87. AZARGA [Suspect]
     Active Substance: BRINZOLAMIDE\TIMOLOL MALEATE
     Indication: Glaucoma
     Route: 047
  88. IBUPROFEN [Suspect]
     Active Substance: IBUPROFEN
     Indication: Arthralgia
  89. VITAMINS [Suspect]
     Active Substance: VITAMINS
     Indication: Product used for unknown indication
  90. VITAMINS [Concomitant]
     Active Substance: VITAMINS
     Indication: Product used for unknown indication
  91. PSEUDOEPHEDRINE [Suspect]
     Active Substance: PSEUDOEPHEDRINE
     Indication: Product used for unknown indication

REACTIONS (7)
  - Nikolsky^s sign positive [Recovered/Resolved]
  - Haemoglobin decreased [Recovered/Resolved]
  - Off label use [Recovered/Resolved]
  - Toxic epidermal necrolysis [Recovered/Resolved]
  - Rash erythematous [Recovered/Resolved]
  - Rash papular [Recovered/Resolved]
  - Epidermal necrosis [Unknown]
